FAERS Safety Report 6459930 (Version 3)
Quarter: 2017Q3

REPORT INFORMATION
  Report Type: Spontaneous
  Country: US (occurrence: US)
  Receive Date: 20061218
  Receipt Date: 20170928
  Transmission Date: 20171128
  Serious: Yes (Death, Hospitalization, Other)
  Sender: FDA-Public Use
  Company Number: US-PFIZER INC-2006138026

PATIENT
  Age: 92 Year
  Sex: Female
  Weight: 58 kg

DRUGS (5)
  1. VIOXX [Suspect]
     Active Substance: ROFECOXIB
     Indication: ARTHRITIS
     Dosage: 12.5 MG, 1X/DAY
     Route: 048
     Dates: start: 20000523
  2. VIOXX [Suspect]
     Active Substance: ROFECOXIB
     Dosage: 25 MG, 1X/DAY
     Route: 048
     Dates: end: 20040901
  3. PAROXETINE. [Concomitant]
     Active Substance: PAROXETINE
     Indication: DEPRESSION
     Dosage: UNK
     Dates: start: 20040601, end: 20060101
  4. CELEBREX [Suspect]
     Active Substance: CELECOXIB
     Indication: ARTHRITIS
     Dosage: UNK
     Route: 048
  5. VIOXX [Suspect]
     Active Substance: ROFECOXIB
     Dosage: UNK
     Dates: start: 20000523, end: 20030525

REACTIONS (3)
  - Myocardial infarction [Fatal]
  - Ischaemic stroke [Unknown]
  - Depression [Unknown]

NARRATIVE: CASE EVENT DATE: 20040822
